FAERS Safety Report 16660927 (Version 15)
Quarter: 2020Q2

REPORT INFORMATION
  Report Type: Spontaneous
  Country: JP (occurrence: JP)
  Receive Date: 20190802
  Receipt Date: 20200602
  Transmission Date: 20200713
  Serious: Yes (Other)
  Sender: FDA-Public Use
  Company Number: JP-BRISTOL-MYERS SQUIBB COMPANY-BMS-2019-064341

PATIENT
  Sex: Male

DRUGS (14)
  1. YERVOY [Suspect]
     Active Substance: IPILIMUMAB
     Indication: PRODUCT USED FOR UNKNOWN INDICATION
     Dosage: UNK UNK, Q3WK
     Route: 065
     Dates: start: 20190711
  2. YERVOY [Suspect]
     Active Substance: IPILIMUMAB
     Indication: PRODUCT USED FOR UNKNOWN INDICATION
     Dosage: UNK UNK, Q3WK
     Route: 065
     Dates: start: 20190820
  3. OPDIVO [Suspect]
     Active Substance: NIVOLUMAB
     Indication: PRODUCT USED FOR UNKNOWN INDICATION
     Dosage: UNK, Q3WK
     Route: 065
     Dates: start: 20190820
  4. RUPAFIN [Concomitant]
     Active Substance: RUPATADINE FUMARATE
     Indication: PRODUCT USED FOR UNKNOWN INDICATION
     Route: 065
  5. PREDONINE [Concomitant]
     Active Substance: PREDNISOLONE
     Indication: PRODUCT USED FOR UNKNOWN INDICATION
     Dosage: 4 TAB
     Route: 065
  6. MONTELUKAST [MONTELUKAST SODIUM] [Concomitant]
     Active Substance: MONTELUKAST SODIUM
     Indication: PRODUCT USED FOR UNKNOWN INDICATION
     Dosage: UNK
     Route: 065
  7. OPDIVO [Suspect]
     Active Substance: NIVOLUMAB
     Indication: MALIGNANT MELANOMA
     Dosage: UNK
     Route: 041
  8. YERVOY [Suspect]
     Active Substance: IPILIMUMAB
     Indication: MALIGNANT MELANOMA
     Dosage: UNK
     Route: 041
  9. YERVOY [Suspect]
     Active Substance: IPILIMUMAB
     Indication: PRODUCT USED FOR UNKNOWN INDICATION
     Dosage: UNK, Q3WK
     Route: 065
     Dates: start: 20190620
  10. OPDIVO [Suspect]
     Active Substance: NIVOLUMAB
     Indication: PRODUCT USED FOR UNKNOWN INDICATION
     Dosage: UNK, Q3WK
     Route: 065
     Dates: start: 20190620
  11. OPDIVO [Suspect]
     Active Substance: NIVOLUMAB
     Indication: PRODUCT USED FOR UNKNOWN INDICATION
     Dosage: UNK, Q2WK
     Route: 065
     Dates: start: 20191009
  12. OPDIVO [Suspect]
     Active Substance: NIVOLUMAB
     Indication: PRODUCT USED FOR UNKNOWN INDICATION
     Dosage: UNK, Q3WK
     Route: 065
     Dates: start: 20190711
  13. PREDONINE [Concomitant]
     Active Substance: PREDNISOLONE
     Indication: PRODUCT USED FOR UNKNOWN INDICATION
     Dosage: 2 TAB
     Route: 065
  14. TAKECAB [Concomitant]
     Active Substance: VONOPRAZAN FUMARATE
     Indication: PRODUCT USED FOR UNKNOWN INDICATION
     Dosage: UNK
     Route: 065

REACTIONS (40)
  - Melaena [Unknown]
  - Dizziness [Recovered/Resolved]
  - Rash [Unknown]
  - Vomiting [Unknown]
  - Tooth disorder [Unknown]
  - Constipation [Unknown]
  - Large intestine perforation [Unknown]
  - Rhinorrhoea [Unknown]
  - Diarrhoea [Unknown]
  - Small intestine polyp [Unknown]
  - Hyperthermia [Unknown]
  - Herpes zoster [Unknown]
  - Rash pruritic [Not Recovered/Not Resolved]
  - Nausea [Unknown]
  - Weight decreased [Unknown]
  - Periorbital swelling [Unknown]
  - Stomatitis [Recovered/Resolved]
  - Leukoderma [Recovering/Resolving]
  - Blister [Recovering/Resolving]
  - C-reactive protein increased [Unknown]
  - Renal impairment [Unknown]
  - Dry throat [Recovered/Resolved]
  - White blood cell count increased [Unknown]
  - Abdominal distension [Unknown]
  - Eyelid ptosis [Unknown]
  - Scar [Unknown]
  - Malaise [Unknown]
  - Blood lactate dehydrogenase increased [Unknown]
  - Myalgia [Recovered/Resolved]
  - Fatigue [Unknown]
  - Faeces pale [Unknown]
  - Haemorrhage [Unknown]
  - Haematochezia [Unknown]
  - Skin disorder [Not Recovered/Not Resolved]
  - Hair colour changes [Not Recovered/Not Resolved]
  - Erythema [Unknown]
  - Pyrexia [Unknown]
  - Acne [Unknown]
  - Flatulence [Unknown]
  - Pruritus [Unknown]

NARRATIVE: CASE EVENT DATE: 20190624
